FAERS Safety Report 25064662 (Version 2)
Quarter: 2025Q1

REPORT INFORMATION
  Report Type: Spontaneous
  Country: US (occurrence: US)
  Receive Date: 20250311
  Receipt Date: 20250319
  Transmission Date: 20250409
  Serious: No
  Sender: ABBVIE
  Company Number: US-ABBVIE-6169842

PATIENT
  Age: 74 Year
  Sex: Male

DRUGS (1)
  1. RISANKIZUMAB [Suspect]
     Active Substance: RISANKIZUMAB
     Indication: Crohn^s disease
     Route: 058
     Dates: start: 20230801

REACTIONS (3)
  - Rash papular [Not Recovered/Not Resolved]
  - Hypersensitivity [Unknown]
  - Rash pruritic [Not Recovered/Not Resolved]
